FAERS Safety Report 10515220 (Version 1)
Quarter: 2014Q4

REPORT INFORMATION
  Report Type: Report from Study
  Country: IE (occurrence: IE)
  Receive Date: 20141014
  Receipt Date: 20141014
  Transmission Date: 20150528
  Serious: Yes (Death)
  Sender: FDA-Public Use
  Company Number: IE-AMGEN-IRLSL2014078943

PATIENT
  Sex: Female

DRUGS (12)
  1. GLUCOPHAGE [Concomitant]
     Active Substance: METFORMIN HYDROCHLORIDE
     Dosage: UNK
  2. ELTROXIN [Concomitant]
     Active Substance: LEVOTHYROXINE
     Dosage: UNK
  3. DEXAMETHASONE. [Concomitant]
     Active Substance: DEXAMETHASONE
     Dosage: UNK
  4. LYRICA [Concomitant]
     Active Substance: PREGABALIN
     Dosage: UNK
  5. INNOHEP [Concomitant]
     Active Substance: TINZAPARIN SODIUM
     Dosage: UNK
  6. TRAMADOL [Concomitant]
     Active Substance: TRAMADOL
     Dosage: UNK
  7. CIPROXIN                           /00697201/ [Concomitant]
     Dosage: UNK
  8. MOTILIUM [Concomitant]
     Active Substance: DOMPERIDONE
     Dosage: UNK
  9. ZOMEL                              /01159001/ [Concomitant]
     Dosage: UNK
  10. EMEND [Concomitant]
     Active Substance: APREPITANT
     Dosage: UNK
  11. INEGY [Concomitant]
     Active Substance: EZETIMIBE\SIMVASTATIN
     Dosage: UNK
  12. NEULASTA [Suspect]
     Active Substance: PEGFILGRASTIM
     Indication: BREAST CANCER METASTATIC
     Dosage: 6MG/0.6MLS, EVERY 3 WEEKS POST CHEMO
     Route: 058
     Dates: start: 20140423

REACTIONS (1)
  - Death [Fatal]

NARRATIVE: CASE EVENT DATE: 20140823
